FAERS Safety Report 8919181 (Version 1)
Quarter: 2012Q4

REPORT INFORMATION
  Report Type: Report from Study
  Country: GB (occurrence: GB)
  Receive Date: 20121121
  Receipt Date: 20121121
  Transmission Date: 20130627
  Serious: Yes (Death, Other)
  Sender: FDA-Public Use
  Company Number: GB-GENZYME-CLOF-1002304

PATIENT
  Age: 49 Year
  Sex: Female

DRUGS (11)
  1. EVOLTRA [Suspect]
     Indication: ACUTE MYELOID LEUKAEMIA
     Dosage: 33 mg, UNK (Cycle 1) Dose D1-3
     Route: 065
     Dates: start: 20110602
  2. EVOLTRA [Suspect]
     Dosage: 32 mg, UNK (Cycle 2)
     Route: 065
     Dates: end: 20110827
  3. CAMPATH [Suspect]
     Indication: BONE MARROW CONDITIONING REGIMEN
     Dosage: 10 mg, UNK
     Route: 065
  4. FLUDARA [Suspect]
     Indication: BONE MARROW CONDITIONING REGIMEN
     Dosage: 30 mg/m2, UNK
     Route: 065
  5. DAUNORUBICIN [Suspect]
     Indication: ACUTE MYELOID LEUKAEMIA
     Dosage: UNK
     Route: 065
     Dates: start: 20110602, end: 20110827
  6. BUSULFAN [Suspect]
     Indication: BONE MARROW CONDITIONING REGIMEN
     Dosage: 0.8 mg/kg, qid
     Route: 065
  7. ARA-C [Suspect]
     Indication: ACUTE MYELOID LEUKAEMIA
     Dosage: UNK
     Route: 065
     Dates: start: 20110602, end: 20110827
  8. MYLOTARG [Suspect]
     Indication: ACUTE MYELOID LEUKAEMIA
     Dosage: UNK
     Route: 065
     Dates: start: 20110602, end: 20110827
  9. ETOPOSIDE [Suspect]
     Indication: ACUTE MYELOID LEUKAEMIA
     Dosage: UNK
     Route: 065
     Dates: start: 20110602, end: 20110827
  10. AZACITIDINE [Concomitant]
     Indication: PRODUCT USED FOR UNKNOWN INDICATION
     Dosage: UNK
     Route: 065
     Dates: start: 20111220
  11. CYCLOSPORIN [Concomitant]
     Indication: PROPHYLAXIS AGAINST GRAFT VERSUS HOST DISEASE
     Dosage: UNK
     Route: 065

REACTIONS (5)
  - Bone marrow failure [Fatal]
  - Cytomegalovirus infection [Unknown]
  - Jaundice [Unknown]
  - Acute myeloid leukaemia recurrent [Fatal]
  - Escherichia sepsis [Fatal]
